FAERS Safety Report 4948090-1 (Version None)
Quarter: 2006Q1

REPORT INFORMATION
  Report Type: 
  Country: None (occurrence: None)
  Receive Date: 20060320
  Receipt Date: 20050218
  Transmission Date: 20060701
  Serious: Yes (Hospitalization, Disabling)
  Sender: FDA-Public Use
  Company Number: US-MERCK-0502USA02696

PATIENT
  Age: 76 Year
  Sex: Female
  Weight: 72 kg

DRUGS (5)
  1. VIOXX [Suspect]
     Indication: ARTHRITIS
     Route: 048
     Dates: start: 19990101, end: 20040901
  2. VIOXX [Suspect]
     Route: 048
     Dates: start: 19990101, end: 20040901
  3. DARVOCET [Concomitant]
     Route: 065
  4. PREMARIN [Concomitant]
     Route: 065
  5. ATENOLOL [Concomitant]
     Route: 065

REACTIONS (39)
  - ANGIOPATHY [None]
  - ANXIETY [None]
  - ARTHRITIS [None]
  - BLOOD CHOLESTEROL INCREASED [None]
  - BLOOD GLUCOSE INCREASED [None]
  - COSTOCHONDRITIS [None]
  - DEEP VEIN THROMBOSIS [None]
  - DIABETES MELLITUS NON-INSULIN-DEPENDENT [None]
  - DIVERTICULUM INTESTINAL [None]
  - DRUG HYPERSENSITIVITY [None]
  - DYSPEPSIA [None]
  - DYSPHAGIA [None]
  - DYSURIA [None]
  - EMOTIONAL DISTRESS [None]
  - FLANK PAIN [None]
  - GASTRITIS [None]
  - GASTROOESOPHAGEAL REFLUX DISEASE [None]
  - HAEMATOCHEZIA [None]
  - HYPERCHLORHYDRIA [None]
  - HYPERTENSION [None]
  - HYPOKALAEMIA [None]
  - INSOMNIA [None]
  - ISCHAEMIC STROKE [None]
  - LACUNAR INFARCTION [None]
  - MEMORY IMPAIRMENT [None]
  - MENTAL IMPAIRMENT [None]
  - NECK PAIN [None]
  - NEPHROLITHIASIS [None]
  - NEUROPATHY PERIPHERAL [None]
  - OESOPHAGEAL STENOSIS [None]
  - PAIN [None]
  - PELVIC MASS [None]
  - RECTAL HAEMORRHAGE [None]
  - ROTATOR CUFF SYNDROME [None]
  - SINUS DISORDER [None]
  - SYNOVITIS [None]
  - THROMBOSED VARICOSE VEIN [None]
  - TRANSIENT ISCHAEMIC ATTACK [None]
  - URINARY TRACT INFECTION [None]
